FAERS Safety Report 14614203 (Version 1)
Quarter: 2018Q1

REPORT INFORMATION
  Report Type: Spontaneous
  Country: US (occurrence: US)
  Receive Date: 20180308
  Receipt Date: 20180308
  Transmission Date: 20180509
  Serious: Yes (Disabling)
  Sender: FDA-Public Use
  Company Number: None

PATIENT
  Age: 25 Year
  Sex: Female
  Weight: 74.25 kg

DRUGS (2)
  1. SPRINTEC [Concomitant]
     Active Substance: ETHINYL ESTRADIOL\NORGESTIMATE
  2. METHYLPHENIDATE ER 54 MG TAB [Suspect]
     Active Substance: METHYLPHENIDATE HYDROCHLORIDE
     Indication: ATTENTION DEFICIT/HYPERACTIVITY DISORDER
     Dosage: ?          QUANTITY:1 TABLET(S);?
     Route: 048
     Dates: start: 20180120, end: 20180306

REACTIONS (8)
  - Tic [None]
  - Nightmare [None]
  - Irritability [None]
  - Disturbance in attention [None]
  - Drug ineffective [None]
  - Aggression [None]
  - Product substitution issue [None]
  - Insomnia [None]

NARRATIVE: CASE EVENT DATE: 20180212
